FAERS Safety Report 4345377-0 (Version None)
Quarter: 2004Q2

REPORT INFORMATION
  Report Type: 
  Country: None (occurrence: None)
  Receive Date: 20040420
  Receipt Date: 20040412
  Transmission Date: 20050107
  Serious: Yes (Other)
  Sender: FDA-Public Use
  Company Number: 2004208807US

PATIENT
  Sex: Female

DRUGS (1)
  1. CALAN [Suspect]
     Dosage: 240 MG, QD

REACTIONS (1)
  - BLOOD PRESSURE SYSTOLIC INCREASED [None]
